FAERS Safety Report 7231187-3 (Version None)
Quarter: 2011Q1

REPORT INFORMATION
  Report Type: 
  Country: None (occurrence: None)
  Receive Date: 20110118
  Receipt Date: 20110113
  Transmission Date: 20110831
  Serious: Yes (Hospitalization)
  Sender: FDA-Public Use
  Company Number: A0905854A

PATIENT
  Age: 80 Year
  Sex: Female

DRUGS (7)
  1. SINEMET [Concomitant]
  2. CYMBALTA [Concomitant]
  3. WARFARIN SODIUM [Concomitant]
  4. REQUIP XL [Suspect]
     Indication: PARKINSON'S DISEASE
     Dosage: 6MG PER DAY
     Route: 048
     Dates: start: 20100701
  5. LEVODOPA [Concomitant]
  6. TRAMADOL [Concomitant]
  7. ATENOLOL [Concomitant]

REACTIONS (3)
  - HIP FRACTURE [None]
  - LOSS OF CONSCIOUSNESS [None]
  - FALL [None]
